FAERS Safety Report 8950887 (Version 1)
Quarter: 2012Q4

REPORT INFORMATION
  Report Type: 
  Country: GB (occurrence: GB)
  Receive Date: 20121207
  Receipt Date: 20121207
  Transmission Date: 20130627
  Serious: Yes (Hospitalization)
  Sender: FDA-Public Use
  Company Number: GB-PFIZER INC-2012304092

PATIENT
  Age: 73 Year
  Sex: Male
  Weight: 85.5 kg

DRUGS (11)
  1. GENOTROPIN [Suspect]
     Dosage: UNK
     Route: 058
     Dates: start: 20020625
  2. LEVOTHYROXINE [Concomitant]
     Indication: TSH DECREASED
     Dosage: UNK
     Dates: start: 19910412
  3. LEVOTHYROXINE [Concomitant]
     Indication: PRIMARY HYPOTHYROIDISM
  4. TESTOSTERONE [Concomitant]
     Indication: TESTICULAR HYPOGONADISM
     Dosage: UNK
     Dates: start: 19911024
  5. TESTOSTERONE [Concomitant]
     Indication: LUTEINIZING HORMONE DEFICIENCY
  6. TESTOSTERONE [Concomitant]
     Indication: FOLLICLE-STIMULATING HORMONE DEFICIENCY
  7. CO-DYDRAMOL [Concomitant]
     Indication: EDEMA
     Dosage: UNK
     Dates: start: 19911211
  8. TRAMADOL [Concomitant]
     Indication: LUMBAR PAIN
     Dosage: UNK
     Dates: start: 20021202
  9. CARBAMAZEPINE [Concomitant]
     Indication: SENSORY DISTURBANCE
     Dosage: UNK
     Dates: start: 20020213
  10. HYDROCORTISONE [Concomitant]
     Indication: ACTH DECREASED
     Dosage: UNK
     Dates: start: 19890503
  11. CABERGOLINE [Concomitant]
     Indication: BLOOD PROLACTIN
     Dosage: UNK
     Dates: start: 20051004

REACTIONS (1)
  - Neoplasm [Unknown]
